FAERS Safety Report 4916739-5 (Version None)
Quarter: 2006Q1

REPORT INFORMATION
  Report Type: 
  Country: None (occurrence: None)
  Receive Date: 20060214
  Receipt Date: 20060201
  Transmission Date: 20060701
  Serious: Yes (Hospitalization)
  Sender: FDA-Public Use
  Company Number: 2006016042

PATIENT
  Age: 23 Year
  Sex: Female

DRUGS (2)
  1. CYTOTEC [Suspect]
     Indication: ILL-DEFINED DISORDER
     Dosage: 0.8 MG (0.2 MG, 4 IN 1 D), VAGINAL
     Route: 067
     Dates: start: 20050916, end: 20050916
  2. ZOLOFT [Concomitant]

REACTIONS (6)
  - CHILLS [None]
  - DRUG EXPOSURE DURING PREGNANCY [None]
  - FEELING ABNORMAL [None]
  - FEELING COLD [None]
  - FLUSHING [None]
  - PYREXIA [None]
